FAERS Safety Report 19420364 (Version 1)
Quarter: 2021Q2

REPORT INFORMATION
  Report Type: Spontaneous
  Country: US (occurrence: US)
  Receive Date: 20210615
  Receipt Date: 20210615
  Transmission Date: 20210717
  Serious: No
  Sender: FDA-Public Use
  Company Number: US-AMGEN-USASP2021090480

PATIENT
  Sex: Female

DRUGS (2)
  1. VASELINE [PARAFFIN] [Concomitant]
     Active Substance: PARAFFIN
     Indication: PSORIASIS
     Dosage: UNK
  2. OTEZLA [Suspect]
     Active Substance: APREMILAST
     Indication: PSORIASIS
     Dosage: UNK
     Route: 065
     Dates: start: 202001

REACTIONS (1)
  - Therapeutic product effect incomplete [Not Recovered/Not Resolved]
